FAERS Safety Report 25417975 (Version 1)
Quarter: 2025Q2

REPORT INFORMATION
  Report Type: Spontaneous
  Country: FR (occurrence: FR)
  Receive Date: 20250610
  Receipt Date: 20250610
  Transmission Date: 20250717
  Serious: Yes (Other)
  Sender: OTSUKA
  Company Number: FR-MMM-Otsuka-LMJZURW5

PATIENT

DRUGS (1)
  1. ABILIFY MAINTENA [Suspect]
     Active Substance: ARIPIPRAZOLE
     Indication: Product used for unknown indication
     Route: 065

REACTIONS (5)
  - Prolactin-producing pituitary tumour [Not Recovered/Not Resolved]
  - Emotional poverty [Unknown]
  - Blood prolactin increased [Unknown]
  - Insomnia [Unknown]
  - Weight increased [Unknown]
